FAERS Safety Report 8863275 (Version 1)
Quarter: 2012Q4

REPORT INFORMATION
  Report Type: 
  Country: US (occurrence: US)
  Receive Date: 20121025
  Receipt Date: 20121025
  Transmission Date: 20130627
  Serious: Yes (Hospitalization)
  Sender: FDA-Public Use
  Company Number: US-BAYER-2012-111898

PATIENT
  Age: 25 Year
  Sex: Female

DRUGS (2)
  1. OCELLA [Suspect]
     Indication: CONTRACEPTION
  2. ADDERALL [Concomitant]

REACTIONS (1)
  - Deep vein thrombosis [None]
